FAERS Safety Report 7072487-X (Version None)
Quarter: 2010Q4

REPORT INFORMATION
  Report Type: 
  Country: None (occurrence: None)
  Receive Date: 20101029
  Receipt Date: 20101020
  Transmission Date: 20110411
  Serious: Yes (Other)
  Sender: FDA-Public Use
  Company Number: CA-JNJFOC-20101006318

PATIENT
  Sex: Female
  Weight: 69.5 kg

DRUGS (2)
  1. REMICADE [Suspect]
     Indication: RHEUMATOID ARTHRITIS
     Route: 042
  2. REMICADE [Suspect]
     Route: 042

REACTIONS (7)
  - DISORIENTATION [None]
  - DYSKINESIA [None]
  - FATIGUE [None]
  - HEADACHE [None]
  - SENSATION OF HEAVINESS [None]
  - THIRST [None]
  - VISION BLURRED [None]
